FAERS Safety Report 6317636-3 (Version None)
Quarter: 2009Q3

REPORT INFORMATION
  Report Type: 
  Country: None (occurrence: None)
  Receive Date: 20090821
  Receipt Date: 20090812
  Transmission Date: 20100115
  Serious: Yes (Other)
  Sender: FDA-Public Use
  Company Number: DE-JNJFOC-20090801251

PATIENT
  Age: 19 Year
  Sex: Male
  Weight: 57 kg

DRUGS (5)
  1. REMICADE [Suspect]
     Route: 042
  2. REMICADE [Suspect]
     Indication: CROHN'S DISEASE
     Dosage: EVERY 8-10 WEEKS
     Route: 042
  3. PURINETHOL [Concomitant]
  4. PREDNISOLONE [Concomitant]
  5. VENOFER [Concomitant]
     Route: 042

REACTIONS (1)
  - LEUKOCYTOSIS [None]
